FAERS Safety Report 22326026 (Version 2)
Quarter: 2023Q2

REPORT INFORMATION
  Report Type: Report from Study
  Country: JP (occurrence: None)
  Receive Date: 20230516
  Receipt Date: 20230518
  Transmission Date: 20230722
  Serious: Yes (Hospitalization)
  Sender: FDA-Public Use
  Company Number: 2022A313078

PATIENT
  Age: 60 Year
  Sex: Female
  Weight: 60 kg

DRUGS (14)
  1. SAPHNELO [Suspect]
     Active Substance: ANIFROLUMAB-FNIA
     Indication: Systemic lupus erythematosus
     Route: 041
     Dates: start: 20220308, end: 20220726
  2. SAPHNELO [Suspect]
     Active Substance: ANIFROLUMAB-FNIA
     Indication: Systemic lupus erythematosus
     Route: 041
     Dates: start: 20230314
  3. UNSPECIFIED INGREDIENT [Concomitant]
     Active Substance: UNSPECIFIED INGREDIENT
     Dosage: 4 MG NUMBER OF SEPARATE DOSAGES UNKNOWN
     Route: 065
  4. MYCOPHENOLATE MOFETIL [Concomitant]
     Active Substance: MYCOPHENOLATE MOFETIL
     Dosage: 200 MG NUMBER OF SEPARATE DOSAGES UNKNOWN
     Route: 065
  5. TACROLIMUS [Concomitant]
     Active Substance: TACROLIMUS
     Dosage: 2 MG NUMBER OF SEPARATE DOSAGES UNKNOWN
     Route: 065
  6. BENIDIPINE HYDROCHLORIDE [Concomitant]
     Active Substance: BENIDIPINE HYDROCHLORIDE
     Dosage: 4 MG NUMBER OF SEPARATE DOSAGES UNKNOWN
     Route: 065
  7. ALLOPURINOL [Concomitant]
     Active Substance: ALLOPURINOL
     Dosage: 100 MG NUMBER OF SEPARATE DOSAGES UNKNOWN
     Route: 065
  8. LEVOTHYROXINE [Concomitant]
     Active Substance: LEVOTHYROXINE
     Dosage: 5 MG NUMBER OF SEPARATE DOSAGES UNKNOWN
     Route: 065
  9. BROTIZOLAM [Concomitant]
     Active Substance: BROTIZOLAM
     Dosage: 0.5 MG NUMBER OF SEPARATE DOSAGES UNKNOWN
     Route: 065
  10. ICOSAPENT ETHYL [Concomitant]
     Active Substance: ICOSAPENT ETHYL
     Dosage: 1800 MG NUMBER OF SEPARATE DOSAGES UNKNOWN
     Route: 065
  11. CELECOXIB [Concomitant]
     Active Substance: CELECOXIB
     Dosage: 100 MG NUMBER OF SEPARATE DOSAGES UNKNOWN
     Route: 065
  12. LANSOPRAZOLE [Concomitant]
     Active Substance: LANSOPRAZOLE
     Dosage: 15 MG NUMBER OF SEPARATE DOSAGES UNKNOWN
     Route: 065
  13. BIO-THREE [Concomitant]
     Active Substance: HERBALS
     Dosage: DOSE UNKNOWN
     Route: 048
  14. HYDROXYZINE HYDROCHLORIDE [Concomitant]
     Active Substance: HYDROXYZINE HYDROCHLORIDE
     Route: 048

REACTIONS (4)
  - Pneumonia [Not Recovered/Not Resolved]
  - Viral infection [Unknown]
  - COVID-19 [Recovered/Resolved]
  - Pneumonia bacterial [Recovered/Resolved]

NARRATIVE: CASE EVENT DATE: 20220801
